FAERS Safety Report 12949920 (Version 1)
Quarter: 2016Q4

REPORT INFORMATION
  Report Type: Spontaneous
  Country: US (occurrence: US)
  Receive Date: 20161117
  Receipt Date: 20161117
  Transmission Date: 20170207
  Serious: Yes (Disabling)
  Sender: FDA-Public Use
  Company Number: None

PATIENT
  Age: 71 Year
  Sex: Female
  Weight: 56.7 kg

DRUGS (11)
  1. ZETIA [Concomitant]
     Active Substance: EZETIMIBE
  2. CALCIUM [Concomitant]
     Active Substance: CALCIUM
  3. LEVOFLOXACIN 750 MG [Suspect]
     Active Substance: LEVOFLOXACIN
     Indication: ANIMAL BITE
     Route: 048
     Dates: start: 20161021, end: 20161023
  4. BABY ASPIRIN [Concomitant]
     Active Substance: ASPIRIN
  5. HCLZ [Concomitant]
  6. LEVOTHYROXINE. [Concomitant]
     Active Substance: LEVOTHYROXINE
  7. VITAMIN D [Concomitant]
     Active Substance: CHOLECALCIFEROL
  8. ANTIHISTAMINES [Concomitant]
     Active Substance: ANTIHISTAMINES NOS
  9. PRINIVIL [Concomitant]
     Active Substance: LISINOPRIL
  10. CROMOLYN SODIUM. [Concomitant]
     Active Substance: CROMOLYN SODIUM
  11. WELLCHOL [Concomitant]

REACTIONS (3)
  - Pain in extremity [None]
  - Infection [None]
  - Peripheral swelling [None]

NARRATIVE: CASE EVENT DATE: 20161023
